FAERS Safety Report 9627539 (Version 2)
Quarter: 2013Q4

REPORT INFORMATION
  Report Type: Not Available
  Country: US (occurrence: US)
  Receive Date: 20131016
  Receipt Date: 20131016
  Transmission Date: 20140711
  Serious: Yes (Hospitalization)
  Sender: FDA-Public Use
  Company Number: US-LUNDBECK-DKLU1089426

PATIENT
  Sex: Female

DRUGS (3)
  1. SABRIL (FOR ORAL SOLUTION) [Suspect]
     Indication: EPILEPSY
     Route: 048
     Dates: start: 201302
  2. SABRIL (FOR ORAL SOLUTION) [Suspect]
     Indication: EPILEPSY
  3. VITAMIN B6 [Concomitant]
     Indication: PRODUCT USED FOR UNKNOWN INDICATION

REACTIONS (4)
  - Convulsion [Unknown]
  - Drug ineffective [Unknown]
  - Somnolence [Unknown]
  - Decreased appetite [Unknown]
